FAERS Safety Report 8830664 (Version 1)
Quarter: 2012Q4

REPORT INFORMATION
  Report Type: 
  Country: JP (occurrence: JP)
  Receive Date: 20121009
  Receipt Date: 20121009
  Transmission Date: 20130627
  Serious: Yes (Hospitalization)
  Sender: FDA-Public Use
  Company Number: JP-JNJFOC-20120913357

PATIENT
  Age: 47 Year
  Sex: Male

DRUGS (2)
  1. TRAMCET [Suspect]
     Indication: PAIN
     Dosage: 2 per 1 day
     Route: 048
     Dates: start: 20120814, end: 20120927
  2. PRIMPERAN [Concomitant]
     Indication: NAUSEA
     Dosage: 1 per 1 day
     Route: 048
     Dates: start: 20120814, end: 20120927

REACTIONS (2)
  - Back pain [Unknown]
  - Nausea [Recovered/Resolved]
